FAERS Safety Report 16079084 (Version 1)
Quarter: 2019Q1

REPORT INFORMATION
  Report Type: Spontaneous
  Country: US (occurrence: US)
  Receive Date: 20190315
  Receipt Date: 20190315
  Transmission Date: 20190418
  Serious: No
  Sender: FDA-Public Use
  Company Number: US-ASTRAZENECA-2019SE25082

PATIENT
  Sex: Male
  Weight: 138.3 kg

DRUGS (6)
  1. ALBUTEROL. [Concomitant]
     Active Substance: ALBUTEROL
     Dosage: 90.0UG AS REQUIRED
     Route: 055
  2. FASENRA [Suspect]
     Active Substance: BENRALIZUMAB
     Indication: RESPIRATORY DISORDER
     Dosage: FIRST DOSE IN MAY-2018 AND HIS SECOND DOSE IN JUN-2018, AND SAID HE HAD TO STOP BECAUSE OF HIS IN...
     Route: 058
  3. PREDNISONE. [Concomitant]
     Active Substance: PREDNISONE
     Indication: ASTHMA
     Route: 048
     Dates: start: 20190208
  4. ZILEUTON. [Concomitant]
     Active Substance: ZILEUTON
     Indication: ASTHMA
     Route: 048
     Dates: start: 201901
  5. SINGULAIR [Concomitant]
     Active Substance: MONTELUKAST SODIUM
     Indication: SINUSITIS
     Route: 048
  6. SPIRIVA [Concomitant]
     Active Substance: TIOTROPIUM BROMIDE MONOHYDRATE
     Indication: ASTHMA
     Route: 055

REACTIONS (5)
  - Drug effect decreased [Unknown]
  - Condition aggravated [Unknown]
  - Feeling abnormal [Unknown]
  - Product dose omission [Unknown]
  - Asthma [Unknown]
